FAERS Safety Report 9096009 (Version 2)
Quarter: 2013Q1

REPORT INFORMATION
  Report Type: Spontaneous
  Country: DE (occurrence: DE)
  Receive Date: 20130207
  Receipt Date: 20130311
  Transmission Date: 20140127
  Serious: Yes (Other)
  Sender: FDA-Public Use
  Company Number: DE-TEVA-385037USA

PATIENT
  Sex: Female

DRUGS (2)
  1. TREANDA [Suspect]
     Dosage: 90 MG/QM
  2. RITUXIMAB [Suspect]

REACTIONS (3)
  - Protein-losing gastroenteropathy [Recovered/Resolved with Sequelae]
  - Oedema [Recovered/Resolved with Sequelae]
  - Diarrhoea [Recovered/Resolved with Sequelae]
